FAERS Safety Report 7993671-4 (Version None)
Quarter: 2011Q4

REPORT INFORMATION
  Report Type: 
  Country: None (occurrence: None)
  Receive Date: 20111219
  Receipt Date: 20111209
  Transmission Date: 20120403
  Serious: Yes (Hospitalization)
  Sender: FDA-Public Use
  Company Number: US-ASTRAZENECA-2011SE75029

PATIENT
  Age: 49 Year
  Sex: Male

DRUGS (57)
  1. MERREM [Suspect]
     Dosage: 1 G IN SODIUM CHLORIDE 0.9 PERCENT, ADMINISTER 1 G INTRAVENOUSLY EVERY EIGHT HOURS
     Route: 042
     Dates: start: 20111201
  2. VITAMIN C [Concomitant]
     Route: 048
     Dates: start: 20111202
  3. FLOVENT HFA [Concomitant]
     Dosage: 110 MCG/ PUFF AEROSOL, INHALE TWO PUFFS IN LUNGSTWICE DAILY, RINSE MOUTH AFTER EVERY USE.
     Route: 055
     Dates: start: 20111116
  4. COUMADIN [Concomitant]
     Route: 048
     Dates: start: 20111207
  5. PROVENTIL [Concomitant]
     Indication: WHEEZING
     Dosage: 2.5 MG/0.5 ML INHALE 0.5 ML AS INSTRUCTED EVERY SIX HOURS
     Route: 055
     Dates: start: 20111201
  6. IMURAN [Concomitant]
     Route: 048
     Dates: start: 20111116
  7. TYGACIL [Concomitant]
     Dosage: 50 MG IN SODIUM CHLORIDE 0.9 PERCENT, ADMINISTER 50 MG EVERY 12 HOURS
     Route: 042
     Dates: start: 20111201
  8. GLUCAGON [Concomitant]
     Dosage: AS NEEDED
     Route: 030
     Dates: start: 20111201
  9. NOVOLOG [Concomitant]
     Indication: DIABETES MELLITUS
     Dosage: 1 UNIT/0.01 ML, 2 TO 4 UNITS THREE TMES DAILY
     Route: 058
     Dates: start: 20111202
  10. ZITHROMAX [Concomitant]
     Route: 048
     Dates: start: 20111201
  11. ZITHROMAX [Concomitant]
     Route: 048
     Dates: start: 20111202
  12. NEXIUM [Concomitant]
     Route: 048
     Dates: start: 20111202
  13. FLOVENT HFA [Concomitant]
     Dosage: 110 MCG/ PUFF AEROSOL, INHALE TWO PUFFS IN LUNGSTWICE DAILY, RINSE MOUTH AFTER EVERY USE.
     Route: 055
     Dates: start: 20111201
  14. ZOFRAN [Concomitant]
     Indication: NAUSEA
     Dosage: TAKE ONE TABLET EVERY EIGHT HOURS AS NEEDED
     Route: 048
     Dates: start: 20111201
  15. IMURAN [Concomitant]
     Route: 048
     Dates: start: 20111201
  16. POTASSIUM CHLORIDE [Concomitant]
     Dosage: 20 MEQ/ 50 ML  AS NEEDED
     Route: 042
     Dates: start: 20111201
  17. TIGECYCLINE [Concomitant]
     Dosage: 50 MG IN SODIUM CHLORIDE 0.9 PERCENT 100 ML EVERY TWELVE HOURS
     Route: 042
     Dates: start: 20111201
  18. VITAMIN C [Concomitant]
     Route: 048
     Dates: start: 20111201
  19. DIFLUCAN [Concomitant]
     Route: 048
     Dates: start: 20111202
  20. ACETAMINOPHEN [Concomitant]
     Indication: PYREXIA
     Dosage: TAKE ONE TABLET EVERY FOUR HOURS AS NEEDED
     Route: 048
     Dates: start: 20111201
  21. NORCO [Concomitant]
     Indication: PAIN
     Dosage: 5/325 TAKE TWO TABLETS EVERY FOUR HOURS AS NEEDED
     Route: 048
     Dates: start: 20111116
  22. FERROUS SULFATE TAB [Concomitant]
     Route: 048
     Dates: start: 20111202
  23. DELTASONE [Concomitant]
     Route: 048
     Dates: start: 20111116
  24. ACETAMINOPHEN [Concomitant]
     Indication: PAIN
     Dosage: TAKE ONE TABLET EVERY FOUR HOURS AS NEEDED
     Route: 048
     Dates: start: 20111201
  25. NORCO [Concomitant]
     Dosage: 5/325 TAKE ONE TABLETS EVERY FOUR HOURS AS NEEDED
     Route: 048
     Dates: start: 20111201
  26. XYLOCAINE [Concomitant]
     Dosage: 1000 UNIT/ML
     Dates: start: 20111206
  27. MAGNESIUM SULFATE [Concomitant]
     Dosage: 2 G AS NEEDED
     Route: 042
     Dates: start: 20111201
  28. NEXIUM [Concomitant]
     Route: 048
     Dates: start: 20111201
  29. MIRALAX [Concomitant]
     Indication: CONSTIPATION
     Dosage: 17 GRAM DAYLY AS NEEDED
     Route: 048
     Dates: start: 20111201
  30. ZOFRAN [Concomitant]
     Indication: VOMITING
     Dosage: TAKE ONE TABLET EVERY EIGHT HOURS AS NEEDED
     Route: 048
     Dates: start: 20111201
  31. CRESTOR [Concomitant]
     Route: 048
     Dates: start: 20111116
  32. MERREM [Suspect]
     Dosage: 1 G IN SODIUM CHLORIDE 0.9 PERCENT, ADMINISTER 1 G INTRAVENOUSLY EVERY EIGHT HOURS
     Route: 042
     Dates: start: 20111129
  33. NEORAL [Concomitant]
     Route: 048
     Dates: start: 20111116
  34. PRAVACHOL [Concomitant]
     Route: 048
     Dates: start: 20111201
  35. VALCYTE [Concomitant]
     Dosage: TAKE ONE TABLET EVERY MONDAY, WEDNESDAY, FRIDAY
     Route: 048
     Dates: start: 20111116
  36. ZITHROMAX [Concomitant]
     Route: 048
     Dates: start: 20111116
  37. CITRACAL + D [Concomitant]
     Dosage: 315-200 MG TAKE TWO TABLETS TWICE DAILY
     Route: 048
     Dates: start: 20111116
  38. CITRACAL + D [Concomitant]
     Dosage: 315-200 MG TAKE TWO TABLETS TWICE DAILY
     Route: 048
     Dates: start: 20111201
  39. DIFLUCAN [Concomitant]
     Route: 048
     Dates: start: 20111116
  40. LOPRESSOR [Concomitant]
     Route: 048
     Dates: start: 20111201
  41. SENOKOT [Concomitant]
     Route: 048
     Dates: start: 20111201
  42. NEORAL [Concomitant]
     Route: 048
     Dates: start: 20111201
  43. DIFLUCAN [Concomitant]
     Route: 048
     Dates: start: 20111201
  44. COUMADIN [Concomitant]
     Route: 048
     Dates: start: 20111201
  45. NEORAL [Concomitant]
     Route: 048
     Dates: start: 20111204
  46. VALCYTE [Concomitant]
     Dosage: TAKE ONE TABLET EVERY MONDAY, WEDNESDAY, FRIDAY
     Route: 048
     Dates: start: 20111202
  47. VITAMIN C [Concomitant]
     Route: 048
     Dates: start: 20111116
  48. FERROUS SULFATE TAB [Concomitant]
     Route: 048
     Dates: start: 20111201
  49. FERROUS SULFATE TAB [Concomitant]
     Route: 048
     Dates: start: 20111116
  50. KEPPRA [Concomitant]
     Route: 048
     Dates: start: 20111201
  51. LOPRESSOR [Concomitant]
     Route: 048
     Dates: start: 20111116
  52. REMERON [Concomitant]
     Route: 048
     Dates: start: 20111201
  53. DELTASONE [Concomitant]
     Route: 048
     Dates: start: 20111201
  54. DELTASONE [Concomitant]
     Route: 048
     Dates: start: 20111202
  55. COUMADIN [Concomitant]
     Route: 048
     Dates: start: 20111116
  56. PROVENTIL [Concomitant]
     Indication: DYSPNOEA
     Dosage: 2.5 MG/0.5 ML INHALE 0.5 ML AS INSTRUCTED EVERY SIX HOURS
     Route: 055
     Dates: start: 20111201
  57. PRILOSEC [Concomitant]
     Route: 048
     Dates: start: 20111117

REACTIONS (4)
  - POST PROCEDURAL INFECTION [None]
  - MYCOBACTERIUM CHELONAE INFECTION [None]
  - IDIOPATHIC PULMONARY FIBROSIS [None]
  - INFECTION [None]
